FAERS Safety Report 10382454 (Version 7)
Quarter: 2015Q3

REPORT INFORMATION
  Report Type: Report from Study
  Country: US (occurrence: US)
  Receive Date: 20140813
  Receipt Date: 20150803
  Transmission Date: 20151125
  Serious: Yes (Hospitalization, Other)
  Sender: FDA-Public Use
  Company Number: US-SA-2014SA056132

PATIENT
  Age: 58 Year
  Sex: Female

DRUGS (4)
  1. AUBAGIO [Suspect]
     Active Substance: TERIFLUNOMIDE
     Indication: RELAPSING-REMITTING MULTIPLE SCLEROSIS
     Route: 048
     Dates: start: 20140410
  2. AUBAGIO [Suspect]
     Active Substance: TERIFLUNOMIDE
     Indication: RELAPSING-REMITTING MULTIPLE SCLEROSIS
     Route: 048
  3. AUBAGIO [Suspect]
     Active Substance: TERIFLUNOMIDE
     Indication: RELAPSING-REMITTING MULTIPLE SCLEROSIS
     Route: 048
     Dates: start: 2014, end: 201502
  4. AMPYRA [Concomitant]
     Active Substance: DALFAMPRIDINE

REACTIONS (14)
  - Cerebral disorder [Unknown]
  - Fatigue [Unknown]
  - Alopecia [Unknown]
  - Unevaluable event [Unknown]
  - Oral pain [Unknown]
  - Surgery [Unknown]
  - White matter lesion [Unknown]
  - Nausea [Unknown]
  - Chloasma [Unknown]
  - Depression [Unknown]
  - Gastric disorder [Unknown]
  - Drug dose omission [Unknown]
  - Malaise [Recovered/Resolved]
  - Unevaluable event [Unknown]

NARRATIVE: CASE EVENT DATE: 2014
